FAERS Safety Report 11710610 (Version 2)
Quarter: 2015Q4

REPORT INFORMATION
  Report Type: Spontaneous
  Country: US (occurrence: US)
  Receive Date: 20151104
  Receipt Date: 20151110
  Transmission Date: 20160304
  Serious: No
  Sender: FDA-Public Use
  Company Number: US-ELI_LILLY_AND_COMPANY-US201105007829

PATIENT
  Sex: Female

DRUGS (5)
  1. FORTEO [Suspect]
     Active Substance: TERIPARATIDE
     Indication: OSTEOPOROSIS
     Dosage: 20 UG, QD
     Route: 058
  2. FORTEO [Suspect]
     Active Substance: TERIPARATIDE
     Dosage: 20 UG, QD
     Route: 058
  3. FORTEO [Suspect]
     Active Substance: TERIPARATIDE
     Dosage: 20 UG, QD
     Route: 058
  4. FORTEO [Suspect]
     Active Substance: TERIPARATIDE
     Dosage: 20 UG, QD
     Route: 058
  5. POTASSIUM [Concomitant]
     Active Substance: POTASSIUM

REACTIONS (15)
  - Fungal skin infection [Unknown]
  - Feeding disorder [Recovered/Resolved]
  - Hyperhidrosis [Recovering/Resolving]
  - Blood pressure abnormal [Unknown]
  - Blood pressure fluctuation [Unknown]
  - Gastrointestinal infection [Recovered/Resolved]
  - Feeling abnormal [Recovering/Resolving]
  - Blood pressure decreased [Unknown]
  - Dizziness [Recovering/Resolving]
  - Asthenia [Recovering/Resolving]
  - Eye oedema [Unknown]
  - Paraesthesia [Recovering/Resolving]
  - Intentional product misuse [Not Recovered/Not Resolved]
  - Injection site pruritus [Recovered/Resolved]
  - Diarrhoea [Recovered/Resolved]

NARRATIVE: CASE EVENT DATE: 2011
